FAERS Safety Report 19262834 (Version 2)
Quarter: 2021Q2

REPORT INFORMATION
  Report Type: Spontaneous
  Country: FR (occurrence: FR)
  Receive Date: 20210517
  Receipt Date: 20210629
  Transmission Date: 20210717
  Serious: Yes (Life-Threatening, Hospitalization, Other)
  Sender: FDA-Public Use
  Company Number: FR-JNJFOC-20210526616

PATIENT
  Age: 73 Year
  Sex: Male
  Weight: 57 kg

DRUGS (6)
  1. STELARA [Suspect]
     Active Substance: USTEKINUMAB
     Route: 058
     Dates: start: 20201001, end: 20210301
  2. COVID?19 VACCINE [Concomitant]
     Dates: start: 20210413
  3. METHOTREXATE. [Suspect]
     Active Substance: METHOTREXATE
     Indication: CROHN^S DISEASE
     Route: 048
     Dates: start: 20121015, end: 201508
  4. METHOTREXATE. [Suspect]
     Active Substance: METHOTREXATE
     Route: 048
     Dates: start: 202010, end: 20210222
  5. STELARA [Suspect]
     Active Substance: USTEKINUMAB
     Indication: CROHN^S DISEASE
     Route: 042
  6. COVID?19 VACCINE [Concomitant]
     Dates: start: 20210511

REACTIONS (8)
  - Streptococcal endocarditis [Recovered/Resolved]
  - Atrial fibrillation [Recovering/Resolving]
  - Anaemia [Recovering/Resolving]
  - Ischaemic stroke [Recovering/Resolving]
  - Acute coronary syndrome [Recovering/Resolving]
  - Pericardial effusion [Recovering/Resolving]
  - Urinary retention [Recovering/Resolving]
  - Aortic stenosis [Recovered/Resolved]

NARRATIVE: CASE EVENT DATE: 202102
